FAERS Safety Report 21788799 (Version 2)
Quarter: 2023Q1

REPORT INFORMATION
  Report Type: Spontaneous
  Country: US (occurrence: US)
  Receive Date: 20221228
  Receipt Date: 20230104
  Transmission Date: 20230418
  Serious: Yes (Life-Threatening, Hospitalization, Other)
  Sender: FDA-Public Use
  Company Number: US-PFIZER INC-PV202200130069

PATIENT
  Age: 4 Decade
  Sex: Male

DRUGS (1)
  1. SULFAMETHOXAZOLE\TRIMETHOPRIM [Suspect]
     Active Substance: SULFAMETHOXAZOLE\TRIMETHOPRIM
     Indication: Perirectal abscess
     Dosage: UNK, 7 DAY COURSE OF TMP/SMX

REACTIONS (1)
  - Haemophagocytic lymphohistiocytosis [Recovered/Resolved]
